FAERS Safety Report 22590414 (Version 1)
Quarter: 2023Q2

REPORT INFORMATION
  Report Type: Spontaneous
  Country: US (occurrence: None)
  Receive Date: 20230609
  Receipt Date: 20230609
  Transmission Date: 20230721
  Serious: Yes (Hospitalization)
  Sender: FDA-Public Use
  Company Number: None

PATIENT
  Sex: Female

DRUGS (23)
  1. LENALIDOMIDE [Suspect]
     Active Substance: LENALIDOMIDE
     Indication: Plasma cell myeloma
     Dosage: OTHER FREQUENCY : 21D ON/7D OFF;?
     Route: 048
     Dates: start: 202102
  2. BACTRIM [Concomitant]
     Active Substance: SULFAMETHOXAZOLE\TRIMETHOPRIM
  3. PROCHLORPERAZINE [Concomitant]
     Active Substance: PROCHLORPERAZINE
  4. MIRALAX [Concomitant]
     Active Substance: POLYETHYLENE GLYCOL 3350
  5. PANTOPRAZOLE [Concomitant]
     Active Substance: PANTOPRAZOLE
  6. OXYCODONE [Concomitant]
     Active Substance: OXYCODONE
  7. MELATONIN [Concomitant]
     Active Substance: MELATONIN
  8. BACLOFEN\CYCLOBENZAPRINE\DICLOFENAC\GABAPENTIN\TETRACAINE [Concomitant]
     Active Substance: BACLOFEN\CYCLOBENZAPRINE\DICLOFENAC\GABAPENTIN\TETRACAINE
  9. FAMOTIDINE [Concomitant]
     Active Substance: FAMOTIDINE
  10. DOCUSATE [Concomitant]
     Active Substance: DOCUSATE
  11. DEXAMETHASONE [Concomitant]
     Active Substance: DEXAMETHASONE
  12. ACYCLOVIR [Concomitant]
     Active Substance: ACYCLOVIR
  13. ACETAMINOPHEN [Concomitant]
     Active Substance: ACETAMINOPHEN
  14. ASPIRIN [Concomitant]
     Active Substance: ASPIRIN
  15. MAALOX ANTACID [Concomitant]
     Active Substance: ALUMINUM HYDROXIDE\DIMETHICONE\MAGNESIUM HYDROXIDE
  16. COLCHICINE [Concomitant]
     Active Substance: COLCHICINE
  17. KRISTALOSE [Concomitant]
     Active Substance: LACTULOSE
  18. MORPHINE [Concomitant]
     Active Substance: MORPHINE
  19. LACTULOSE [Concomitant]
     Active Substance: LACTULOSE
  20. MIRTAZAPINE [Concomitant]
     Active Substance: MIRTAZAPINE
  21. XARELTO [Concomitant]
     Active Substance: RIVAROXABAN
  22. CIPROFLOXACIN [Concomitant]
     Active Substance: CIPROFLOXACIN
  23. VANCOMYCIN [Concomitant]
     Active Substance: VANCOMYCIN

REACTIONS (1)
  - Meningitis [None]
